FAERS Safety Report 9911459 (Version 1)
Quarter: 2014Q1

REPORT INFORMATION
  Report Type: Report from Study
  Country: FR (occurrence: FR)
  Receive Date: 20140219
  Receipt Date: 20140219
  Transmission Date: 20141002
  Serious: Yes (Hospitalization, Other)
  Sender: FDA-Public Use
  Company Number: PHHY2014FR020142

PATIENT
  Age: 56 Year
  Sex: Male

DRUGS (5)
  1. MYCOPHENOLIC ACID [Suspect]
     Indication: PROPHYLAXIS AGAINST TRANSPLANT REJECTION
     Dosage: 1440 MG, QD
     Dates: start: 20130702, end: 201311
  2. MYCOPHENOLIC ACID [Suspect]
     Dosage: 720 MG, QD
     Dates: start: 201311
  3. BACTRIM [Concomitant]
     Indication: INFECTION PROPHYLAXIS
     Dosage: 400 MG, QD
     Dates: start: 20130703
  4. PROGRAF [Concomitant]
     Indication: PROPHYLAXIS AGAINST TRANSPLANT REJECTION
     Dosage: 9.5 MG, QD
     Dates: start: 20130705
  5. RIMIFON [Concomitant]
     Indication: INFECTION PROPHYLAXIS
     Dosage: 300 MG, QD
     Dates: start: 20130703

REACTIONS (2)
  - Renal failure acute [Recovered/Resolved]
  - Diarrhoea [Recovered/Resolved]
